FAERS Safety Report 4673805-X (Version None)
Quarter: 2005Q2

REPORT INFORMATION
  Report Type: 
  Country: None (occurrence: None)
  Receive Date: 20050523
  Receipt Date: 20040903
  Transmission Date: 20051028
  Serious: Yes (Other)
  Sender: FDA-Public Use
  Company Number: 10061366-C622357-0

PATIENT
  Age: 20 Year
  Sex: Female
  Weight: 65.7716 kg

DRUGS (2)
  1. LACTATED RINGER'S [Suspect]
     Dosage: 100 ML, Q HR, IV
     Route: 042
     Dates: start: 20040901
  2. FENTANYL 200 MICROGRANS IN 100 CC OF TOTAL GLUID WITH BUPIVICAINE 0.1% [Concomitant]

REACTIONS (5)
  - DYSPNOEA [None]
  - FEELING HOT [None]
  - PRURITUS [None]
  - RASH [None]
  - SWOLLEN TONGUE [None]
